FAERS Safety Report 15842982 (Version 1)
Quarter: 2019Q1

REPORT INFORMATION
  Report Type: Report from Study
  Country: US (occurrence: US)
  Receive Date: 20190118
  Receipt Date: 20190118
  Transmission Date: 20190417
  Serious: Yes (Death)
  Sender: FDA-Public Use
  Company Number: US-TEVA-2019-US-999719

PATIENT
  Sex: Female

DRUGS (2)
  1. AUSTEDO [Suspect]
     Active Substance: DEUTETRABENAZINE
     Indication: HUNTINGTON^S DISEASE
     Dates: start: 20170822, end: 20170917
  2. AUSTEDO [Suspect]
     Active Substance: DEUTETRABENAZINE
     Dates: start: 20171021

REACTIONS (1)
  - Death [Fatal]
